FAERS Safety Report 20231092 (Version 7)
Quarter: 2022Q2

REPORT INFORMATION
  Report Type: Spontaneous
  Country: JP (occurrence: JP)
  Receive Date: 20211227
  Receipt Date: 20220524
  Transmission Date: 20220720
  Serious: Yes (Hospitalization, Other)
  Sender: FDA-Public Use
  Company Number: JP-ASTELLAS-2021JP024823

PATIENT
  Age: 72 Year
  Sex: Male
  Weight: 50 kg

DRUGS (11)
  1. PADCEV [Suspect]
     Active Substance: ENFORTUMAB VEDOTIN-EJFV
     Indication: Malignant neoplasm of renal pelvis
     Dosage: 1.25 MG/KG, 3 THRICE/4 W
     Route: 042
     Dates: start: 20211209, end: 20211216
  2. PADCEV [Suspect]
     Active Substance: ENFORTUMAB VEDOTIN-EJFV
     Route: 042
     Dates: end: 20220415
  3. KEYTRUDA [Suspect]
     Active Substance: PEMBROLIZUMAB
     Indication: Malignant neoplasm of renal pelvis
     Dosage: 200 MG, EVERY 3 WEEKS, 4 COURSES
     Route: 065
     Dates: start: 20210906, end: 20211128
  4. CALONAL [Concomitant]
     Active Substance: ACETAMINOPHEN
     Indication: Cancer pain
     Route: 048
     Dates: start: 20210419, end: 20211222
  5. ENTECAVIR [Concomitant]
     Active Substance: ENTECAVIR
     Indication: Hepatitis B
     Dosage: 0.5 MG, ONCE DAILY
     Route: 048
     Dates: start: 20210506
  6. Novamin [Concomitant]
     Indication: Constipation
     Route: 048
     Dates: start: 20210521, end: 20211220
  7. OXYCONTIN [Concomitant]
     Active Substance: OXYCODONE HYDROCHLORIDE
     Indication: Cancer pain
     Route: 048
     Dates: start: 20210608, end: 20211213
  8. MAGNESIUM OXIDE [Concomitant]
     Active Substance: MAGNESIUM OXIDE
     Indication: Constipation
     Route: 048
     Dates: start: 20210624, end: 20211220
  9. SYMPROIC [Concomitant]
     Active Substance: NALDEMEDINE
     Indication: Constipation
     Dosage: 0.2 MG, ONCE DAILY
     Route: 048
     Dates: start: 20210802, end: 20211220
  10. DAYVIGO [Concomitant]
     Active Substance: LEMBOREXANT
     Indication: Insomnia
     Route: 048
     Dates: start: 20210819, end: 20211220
  11. FENTANYL [Concomitant]
     Active Substance: FENTANYL
     Indication: Cancer pain
     Route: 050
     Dates: start: 20211221, end: 20211230

REACTIONS (3)
  - Dehydration [Recovered/Resolved]
  - Hypokalaemia [Recovered/Resolved]
  - Diarrhoea [Recovered/Resolved]

NARRATIVE: CASE EVENT DATE: 20211221
